FAERS Safety Report 18866958 (Version 1)
Quarter: 2021Q1

REPORT INFORMATION
  Report Type: Report from Study
  Country: IT (occurrence: IT)
  Receive Date: 20210209
  Receipt Date: 20210209
  Transmission Date: 20210420
  Serious: Yes (Hospitalization)
  Sender: FDA-Public Use
  Company Number: IT-BRISTOL-MYERS SQUIBB COMPANY-BMS-2021-011381

PATIENT
  Age: 83 Year
  Sex: Male

DRUGS (1)
  1. APIXABAN [Suspect]
     Active Substance: APIXABAN
     Indication: THROMBOSIS PROPHYLAXIS
     Dosage: 10 MILLIGRAM, PER DAY
     Route: 048
     Dates: start: 20201001

REACTIONS (3)
  - Pallor [Unknown]
  - Dyspnoea exertional [Unknown]
  - Asthenia [Unknown]

NARRATIVE: CASE EVENT DATE: 20201212
